FAERS Safety Report 12422990 (Version 1)
Quarter: 2016Q2

REPORT INFORMATION
  Report Type: Spontaneous
  Country: US (occurrence: None)
  Receive Date: 20160531
  Receipt Date: 20160531
  Transmission Date: 20160815
  Serious: Yes (Other)
  Sender: FDA-Public Use
  Company Number: None

PATIENT
  Age: 55 Year
  Sex: Female
  Weight: 58.97 kg

DRUGS (2)
  1. EUCERIN ECZEMA RELIEF BODY [Suspect]
     Active Substance: OATMEAL
     Indication: SKIN DISORDER
     Route: 061
  2. COPPERTONE TANNING SUNSCREEN SPF 15 [Suspect]
     Active Substance: AVOBENZONE\HOMOSALATE\OCTISALATE\OCTOCRYLENE
     Indication: PROPHYLAXIS AGAINST SOLAR RADIATION

REACTIONS (2)
  - Malignant melanoma [None]
  - Haemorrhage [None]

NARRATIVE: CASE EVENT DATE: 20160514
